FAERS Safety Report 9239982 (Version 1)
Quarter: 2013Q2

REPORT INFORMATION
  Report Type: Spontaneous
  Country: US (occurrence: US)
  Receive Date: 20130418
  Receipt Date: 20130418
  Transmission Date: 20140414
  Serious: Yes (Other)
  Sender: FDA-Public Use
  Company Number: US-GLAXOSMITHKLINE-A1020531A

PATIENT
  Age: 57 Year
  Sex: Male

DRUGS (2)
  1. LAMOTRIGINE [Suspect]
     Indication: PRODUCT USED FOR UNKNOWN INDICATION
     Route: 065
  2. SABRIL [Suspect]
     Indication: EPILEPSY
     Dosage: 1500MG TWICE PER DAY
     Route: 065
     Dates: start: 20120910

REACTIONS (2)
  - Grand mal convulsion [Unknown]
  - Photopsia [Unknown]
